FAERS Safety Report 14775011 (Version 3)
Quarter: 2018Q2

REPORT INFORMATION
  Report Type: Spontaneous
  Country: US (occurrence: US)
  Receive Date: 20180418
  Receipt Date: 20180613
  Transmission Date: 20180711
  Serious: Yes (Death, Hospitalization, Other)
  Sender: FDA-Public Use
  Company Number: US-SAOL THERAPEUTICS-2018SAO00534

PATIENT
  Sex: Female
  Weight: 49.89 kg

DRUGS (2)
  1. BACLOFEN. [Suspect]
     Active Substance: BACLOFEN
     Indication: QUADRIPLEGIA
  2. BACLOFEN. [Suspect]
     Active Substance: BACLOFEN
     Indication: MUSCLE SPASTICITY
     Route: 037

REACTIONS (11)
  - Respiratory failure [Fatal]
  - Cardiac failure [Fatal]
  - Chronic obstructive pulmonary disease [Unknown]
  - Bronchiectasis [Unknown]
  - Fatigue [Unknown]
  - Lethargy [Unknown]
  - Muscle spasticity [Unknown]
  - Septic shock [Fatal]
  - Bronchial secretion retention [None]
  - Neurodegenerative disorder [Fatal]
  - Pneumonia escherichia [Fatal]

NARRATIVE: CASE EVENT DATE: 2018
